FAERS Safety Report 13658926 (Version 1)
Quarter: 2017Q2

REPORT INFORMATION
  Report Type: Spontaneous
  Country: US (occurrence: US)
  Receive Date: 20170616
  Receipt Date: 20170616
  Transmission Date: 20170830
  Serious: No
  Sender: FDA-Public Use
  Company Number: US-IROKO PHARMACEUTICALS LLC-US-I09001-17-00034

PATIENT
  Sex: Female

DRUGS (1)
  1. TIVORBEX [Suspect]
     Active Substance: INDOMETHACIN
     Indication: MUSCLE SPASMS
     Route: 048
     Dates: start: 20170307

REACTIONS (2)
  - Product use in unapproved indication [Unknown]
  - Feeling drunk [Recovering/Resolving]

NARRATIVE: CASE EVENT DATE: 20170307
